FAERS Safety Report 20249274 (Version 1)
Quarter: 2021Q4

REPORT INFORMATION
  Report Type: Spontaneous
  Country: US (occurrence: None)
  Receive Date: 20211229
  Receipt Date: 20211229
  Transmission Date: 20220303
  Serious: Yes (Other)
  Sender: FDA-Public Use
  Company Number: None

PATIENT
  Sex: Female
  Weight: 99.79 kg

DRUGS (4)
  1. ARMOUR THYROID [Suspect]
     Active Substance: THYROID, PORCINE
     Indication: Hypothyroidism
     Dosage: OTHER QUANTITY : 1 PER DAY;?FREQUENCY : DAILY;?
     Route: 048
     Dates: start: 20200325, end: 20211020
  2. C-pap [Concomitant]
  3. LOSARTAN POTASSIUM [Concomitant]
     Active Substance: LOSARTAN POTASSIUM
  4. LEVOXYL [Concomitant]
     Active Substance: LEVOTHYROXINE SODIUM

REACTIONS (9)
  - Dyspnoea [None]
  - Chest pain [None]
  - Angina pectoris [None]
  - Drug ineffective [None]
  - Hypoaesthesia [None]
  - Somnolence [None]
  - Drug level decreased [None]
  - Pain [None]
  - Fatigue [None]
